FAERS Safety Report 4613856-4 (Version None)
Quarter: 2005Q1

REPORT INFORMATION
  Report Type: 
  Country: None (occurrence: None)
  Receive Date: 20050321
  Receipt Date: 20030324
  Transmission Date: 20050727
  Serious: Yes (Hospitalization)
  Sender: FDA-Public Use
  Company Number: US-BRISTOL-MYERS SQUIBB COMPANY-12214094

PATIENT
  Age: 58 Year
  Sex: Female

DRUGS (28)
  1. CISPLATIN [Suspect]
     Indication: NEOPLASM MALIGNANT
     Route: 042
     Dates: start: 20000728, end: 20000915
  2. CETUXIMAB [Suspect]
     Indication: NEOPLASM MALIGNANT
     Dosage: 400 MG/M2 INITIALLY, 250 MG/M2 MAINTENANCE
     Route: 042
     Dates: start: 20000728, end: 20000915
  3. RADIOTHERAPY [Suspect]
     Indication: NEOPLASM MALIGNANT
     Dates: start: 20000728, end: 20000915
  4. OXYCODONE HCL [Concomitant]
     Dosage: DOSE:  5-10 MG
     Dates: start: 20000811
  5. OXYCODONE HCL [Concomitant]
     Dates: start: 20000826
  6. OXYCODONE HCL [Concomitant]
     Dates: start: 20000908
  7. OXYCODONE HCL [Concomitant]
     Dates: start: 20000918
  8. COLACE [Concomitant]
     Dates: start: 20000918
  9. ZANTAC [Concomitant]
     Dates: start: 20000728
  10. ZANTAC [Concomitant]
     Dates: start: 20000811
  11. ZANTAC [Concomitant]
     Dates: start: 20000826
  12. ZANTAC [Concomitant]
     Dates: start: 20000908
  13. ZANTAC [Concomitant]
     Dates: start: 20000918
  14. COMPAZINE [Concomitant]
     Dates: start: 20000728
  15. COMPAZINE [Concomitant]
     Dates: start: 20000811
  16. COMPAZINE [Concomitant]
     Dates: start: 20000908
  17. SENOKOT [Concomitant]
     Dates: start: 20000728
  18. SENOKOT [Concomitant]
     Dates: start: 20000918
  19. MAGIC MOUTHWASH [Concomitant]
     Dates: start: 20000728
  20. MAGIC MOUTHWASH [Concomitant]
     Dates: start: 20000811
  21. MAGIC MOUTHWASH [Concomitant]
     Dates: start: 20000908
  22. EX-LAX [Concomitant]
     Dates: start: 20000728
  23. AMBIEN [Concomitant]
     Dosage: DOSE:  5-10 MG
     Dates: start: 20000728
  24. ATIVAN [Concomitant]
     Dates: start: 20000728
  25. ATIVAN [Concomitant]
     Dates: start: 20000826
  26. DIFLUCAN [Concomitant]
     Dates: start: 20000826
  27. MYCELEX [Concomitant]
     Dates: start: 20000826
  28. LACTULOSE [Concomitant]

REACTIONS (2)
  - DEHYDRATION [None]
  - RENAL FAILURE ACUTE [None]
